FAERS Safety Report 24573064 (Version 2)
Quarter: 2024Q4

REPORT INFORMATION
  Report Type: Report from Study
  Country: US (occurrence: US)
  Receive Date: 20241101
  Receipt Date: 20241112
  Transmission Date: 20250115
  Serious: No
  Sender: SUNOVION
  Company Number: US-SUMITOMO PHARMA SWITZERLAND GMBH-2024SPA004365

PATIENT

DRUGS (2)
  1. ORGOVYX [Suspect]
     Active Substance: RELUGOLIX
     Indication: Prostate cancer
     Dosage: 360 MG, SINGLE
     Route: 048
     Dates: start: 20241018, end: 20241018
  2. ORGOVYX [Suspect]
     Active Substance: RELUGOLIX
     Dosage: 120 MG, QD
     Route: 048
     Dates: start: 20241019

REACTIONS (7)
  - Palpitations [Unknown]
  - Hypoaesthesia [Unknown]
  - Headache [Unknown]
  - Musculoskeletal pain [Unknown]
  - Fatigue [Unknown]
  - Diarrhoea [Unknown]
  - Hot flush [Unknown]
